FAERS Safety Report 9867550 (Version 1)
Quarter: 2014Q1

REPORT INFORMATION
  Report Type: Spontaneous
  Country: US (occurrence: None)
  Receive Date: 20140131
  Receipt Date: 20140131
  Transmission Date: 20141002
  Serious: Yes (Death)
  Sender: FDA-Public Use
  Company Number: SYM-2014-15757

PATIENT
  Age: 31 Year
  Sex: Male

DRUGS (2)
  1. BUPROPION [Suspect]
  2. HEROIN [Suspect]

REACTIONS (1)
  - Drug abuse [None]
